FAERS Safety Report 6017434-4 (Version None)
Quarter: 2008Q4

REPORT INFORMATION
  Report Type: 
  Country: None (occurrence: None)
  Receive Date: 20081223
  Receipt Date: 20081217
  Transmission Date: 20090506
  Serious: Yes (Hospitalization)
  Sender: FDA-Public Use
  Company Number: FR-BAXTER-2008BH012664

PATIENT
  Age: 50 Year
  Sex: Male

DRUGS (9)
  1. EXTRANEAL [Suspect]
     Indication: RENAL FAILURE CHRONIC
     Dosage: DOSE UNIT:UNKNOWN
     Route: 033
     Dates: start: 20050413, end: 20080114
  2. SPECIAFOLDINE [Concomitant]
  3. CARDENSIEL [Concomitant]
  4. XYZAL [Concomitant]
  5. IMOVANE [Concomitant]
  6. ESOMEPRAZOLE MAGNESIUM [Concomitant]
  7. SPASFON [Concomitant]
  8. TRIMEBUTINE [Concomitant]
  9. TRAMADOL [Concomitant]

REACTIONS (1)
  - SCLEROSING ENCAPSULATING PERITONITIS [None]
